FAERS Safety Report 5816734-8 (Version None)
Quarter: 2008Q3

REPORT INFORMATION
  Report Type: 
  Country: None (occurrence: None)
  Receive Date: 20080721
  Receipt Date: 20080716
  Transmission Date: 20090109
  Serious: Yes (Hospitalization, Other)
  Sender: FDA-Public Use
  Company Number: JP-BOEHRINGER INGELHEIM GMBH, GERMANY-2008-BP-08919NB

PATIENT
  Sex: Female

DRUGS (3)
  1. MICARDIS [Suspect]
     Indication: HYPERTENSION
     Route: 048
     Dates: start: 20060522, end: 20080602
  2. LIVALO [Suspect]
     Route: 048
     Dates: start: 20060401, end: 20080601
  3. NORVASC [Suspect]
     Route: 048
     Dates: start: 20060401, end: 20080401

REACTIONS (2)
  - APLASTIC ANAEMIA [None]
  - SEPSIS [None]
